FAERS Safety Report 18323025 (Version 2)
Quarter: 2021Q3

REPORT INFORMATION
  Report Type: Spontaneous
  Country: US (occurrence: US)
  Receive Date: 20200928
  Receipt Date: 20210709
  Transmission Date: 20211014
  Serious: Yes (Hospitalization)
  Sender: FDA-Public Use
  Company Number: US-VERTEX PHARMACEUTICALS-2020-018875

PATIENT
  Sex: Male

DRUGS (15)
  1. NASONEX [Concomitant]
     Active Substance: MOMETASONE FUROATE
     Dosage: 2 UNK, QD
     Route: 045
  2. SODIUM CHLORIDE. [Concomitant]
     Active Substance: SODIUM CHLORIDE
     Dosage: UNK, BID
     Route: 055
  3. PREVACID [Concomitant]
     Active Substance: LANSOPRAZOLE
     Dosage: 30 MILLIGRAM, QD
     Route: 048
  4. DULCOLAX (BISACODYL) [Concomitant]
     Active Substance: BISACODYL
     Dosage: UNK
  5. AMITIZA [Concomitant]
     Active Substance: LUBIPROSTONE
     Dosage: 24 MICROGRAM, BID
     Route: 048
  6. BACTRIM DS [Concomitant]
     Active Substance: SULFAMETHOXAZOLE\TRIMETHOPRIM
     Dosage: 1 UNK
     Route: 048
  7. TRIKAFTA [Suspect]
     Active Substance: ELEXACAFTOR\IVACAFTOR\TEZACAFTOR
     Dosage: REDUCED (1 AM PILL A DAY)
     Route: 048
  8. CREON [Concomitant]
     Active Substance: PANCRELIPASE AMYLASE\PANCRELIPASE LIPASE\PANCRELIPASE PROTEASE
     Dosage: 5 UNK
     Route: 048
  9. XYZAL [Concomitant]
     Active Substance: LEVOCETIRIZINE DIHYDROCHLORIDE
     Dosage: 5 MILLIGRAM, QD
     Route: 048
  10. IBUPROFEN. [Concomitant]
     Active Substance: IBUPROFEN
     Dosage: 400 MILLIGRAM
     Route: 048
  11. TRIKAFTA [Suspect]
     Active Substance: ELEXACAFTOR\IVACAFTOR\TEZACAFTOR
     Indication: CYSTIC FIBROSIS
     Dosage: (ELEXA100MG/TEZA 50MG/IVA 75MG AND IVA 150MG), BID
     Route: 048
     Dates: start: 20191108
  12. PERCOCET [Concomitant]
     Active Substance: ACETAMINOPHEN\OXYCODONE HYDROCHLORIDE
     Dosage: UNK
  13. VITAMIN D3 [Concomitant]
     Active Substance: CHOLECALCIFEROL
     Dosage: 5000 INTERNATIONAL UNIT, QD
     Route: 048
  14. CALCIUM + VITAMIN D [CALCIUM;COLECALCIFEROL] [Concomitant]
     Active Substance: CALCIUM\CHOLECALCIFEROL
     Dosage: UNK, QD
     Route: 048
  15. PROAIR HFA [Concomitant]
     Active Substance: ALBUTEROL SULFATE
     Dosage: 2 UNK, BID
     Route: 055

REACTIONS (2)
  - Sinusitis [Unknown]
  - Anxiety [Unknown]

NARRATIVE: CASE EVENT DATE: 2020
